FAERS Safety Report 21887310 (Version 2)
Quarter: 2023Q1

REPORT INFORMATION
  Report Type: Spontaneous
  Country: JP (occurrence: JP)
  Receive Date: 20230119
  Receipt Date: 20230124
  Transmission Date: 20230417
  Serious: Yes (Other)
  Sender: FDA-Public Use
  Company Number: JP-SAKK-01450119

PATIENT
  Age: 50 Year
  Sex: Male

DRUGS (1)
  1. DUPIXENT [Suspect]
     Active Substance: DUPILUMAB
     Indication: Dermatitis atopic
     Dosage: UNK, QOW
     Route: 058
     Dates: start: 202110

REACTIONS (5)
  - Parkinson^s disease [Unknown]
  - Abdominal pain [Unknown]
  - Faeces soft [Recovered/Resolved]
  - Conjunctivitis [Unknown]
  - Eye discharge [Unknown]

NARRATIVE: CASE EVENT DATE: 20220201
